FAERS Safety Report 5844911-9 (Version None)
Quarter: 2008Q3

REPORT INFORMATION
  Report Type: 
  Country: None (occurrence: None)
  Receive Date: 20080814
  Receipt Date: 20080806
  Transmission Date: 20090109
  Serious: Yes (Death, Hospitalization)
  Sender: FDA-Public Use
  Company Number: US-KINGPHARMUSA00001-K200800919

PATIENT

DRUGS (9)
  1. ALTACE [Suspect]
     Indication: HYPERTENSION
     Dosage: 10 MG, QD
     Route: 048
     Dates: start: 20080510, end: 20080508
  2. ROCEPHIN [Suspect]
     Indication: PNEUMONIA
     Dosage: 2 G, QD
     Route: 042
     Dates: start: 20080506, end: 20080508
  3. SOMAC [Suspect]
     Dosage: 40 MG, QD
     Route: 048
     Dates: start: 20080325, end: 20080508
  4. ZINACEF                            /00454601/ [Suspect]
     Indication: PNEUMONIA
     Dosage: 4.5 G, QD
     Route: 042
     Dates: start: 20080502, end: 20080506
  5. KALINORM [Concomitant]
     Indication: HYPOKALAEMIA
     Dosage: 3000 MG, UNK
     Route: 048
     Dates: start: 20080506
  6. DIGOXIN [Concomitant]
     Dosage: 62.5 UG, UNK
     Route: 048
     Dates: start: 20040901
  7. ORMOX [Concomitant]
     Dosage: 20 MG, UNK
     Route: 048
     Dates: start: 20040708
  8. FURESIS [Concomitant]
     Dosage: 40 MG, UNK
     Route: 048
     Dates: start: 20070516
  9. EMCONCOR                           /00802601/ [Concomitant]
     Dosage: 2.5 MG, UNK
     Route: 048
     Dates: start: 20070522

REACTIONS (8)
  - FALL [None]
  - FOREIGN BODY ASPIRATION [None]
  - HAEMOGLOBIN DECREASED [None]
  - HYPOKALAEMIA [None]
  - INFECTION [None]
  - PANCYTOPENIA [None]
  - PELVIC FRACTURE [None]
  - PNEUMONIA [None]
